FAERS Safety Report 17646272 (Version 2)
Quarter: 2020Q2

REPORT INFORMATION
  Report Type: Report from Study
  Country: US (occurrence: US)
  Receive Date: 20200408
  Receipt Date: 20200605
  Transmission Date: 20200713
  Serious: Yes (Hospitalization, Other)
  Sender: FDA-Public Use
  Company Number: US-MYLANLABS-2020M1034422

PATIENT
  Age: 4 Year
  Sex: Female
  Weight: 25.5 kg

DRUGS (11)
  1. MERCAPTOPURINE. [Suspect]
     Active Substance: MERCAPTOPURINE
     Dosage: 63 MILLIGRAM (MAINTENANCE C1 DAY 1-84)
     Route: 048
     Dates: start: 20200313
  2. METHOTREXATE. [Suspect]
     Active Substance: METHOTREXATE
     Dosage: 16.25 MILLIGRAM (MAINTENANCE 8, 15, 22, 36, 43, 50, 57, 64, 71, 78)
     Route: 048
     Dates: start: 20200313
  3. RUXOLITINIB [Suspect]
     Active Substance: RUXOLITINIB
     Dosage: 45 MILLIGRAM, BID ( IM2 DAYS 1-10, 21-30, 41-50)
     Route: 048
     Dates: start: 20200324
  4. PREDNISONE. [Suspect]
     Active Substance: PREDNISONE
     Indication: ACUTE LYMPHOCYTIC LEUKAEMIA
     Dosage: 17.5 MILLIGRAM, CYCLE (MAINTENANCE CYCLE 2 DAY 1-5)
     Route: 048
     Dates: start: 20200225
  5. METHOTREXATE. [Suspect]
     Active Substance: METHOTREXATE
     Dosage: 16.25 MILLIGRAM (MAINTENANCE 8, 15, 22, 36, 43, 50, 57, 64, 71, 78)
     Route: 048
     Dates: start: 20191210, end: 20200303
  6. RUXOLITINIB [Suspect]
     Active Substance: RUXOLITINIB
     Indication: ACUTE LYMPHOCYTIC LEUKAEMIA
     Dosage: 40 MILLIGRAM, BID (IM1, D1 PTI, D1 PT2, MC1 DAY 1-14, 29-33, 57-70)
     Route: 048
     Dates: start: 20190304, end: 20200210
  7. METHOTREXATE. [Suspect]
     Active Substance: METHOTREXATE
     Indication: ACUTE LYMPHOCYTIC LEUKAEMIA
     Dosage: 16.25 MILLIGRAM (MAINTENANCE 8, 15, 22, 36, 43, 50, 57, 64, 71, 78)
     Route: 048
     Dates: start: 20191210, end: 20200218
  8. VINCRISTINE [Suspect]
     Active Substance: VINCRISTINE
     Indication: ACUTE LYMPHOCYTIC LEUKAEMIA
     Dosage: 1.34 MILLIGRAM, CYCLE (MAINTENANCE CYCLE 2 DAY 1)
     Route: 042
     Dates: start: 20200225
  9. MERCAPTOPURINE. [Suspect]
     Active Substance: MERCAPTOPURINE
     Indication: ACUTE LYMPHOCYTIC LEUKAEMIA
     Dosage: 63 MILLIGRAM (MAINTENANCE C1 DAY 1-84)
     Route: 048
     Dates: start: 20191203, end: 20200224
  10. RUXOLITINIB [Suspect]
     Active Substance: RUXOLITINIB
     Dosage: 45 MILLIGRAM, BID ( IM2 DAYS 1-10, 21-30, 41-50)
     Route: 048
     Dates: start: 20191008, end: 20191130
  11. METHOTREXATE. [Suspect]
     Active Substance: METHOTREXATE
     Indication: ACUTE LYMPHOCYTIC LEUKAEMIA
     Dosage: 12 MILLIGRAM (MC1D1, 29; MC2D1)
     Route: 037
     Dates: start: 20191203

REACTIONS (3)
  - Proctalgia [Recovered/Resolved]
  - Febrile neutropenia [Recovered/Resolved]
  - Platelet count decreased [Recovered/Resolved]

NARRATIVE: CASE EVENT DATE: 20200302
